FAERS Safety Report 4997162-4 (Version None)
Quarter: 2006Q2

REPORT INFORMATION
  Report Type: 
  Country: None (occurrence: None)
  Receive Date: 20060505
  Receipt Date: 20060505
  Transmission Date: 20061013
  Serious: Yes (Death, Life-Threatening, Hospitalization, Disabling, Other)
  Sender: FDA-Public Use
  Company Number: None

PATIENT
  Age: 55 Year
  Sex: Female
  Weight: 72.3 kg

DRUGS (1)
  1. TEMODAR [Suspect]
     Indication: ASTROCYTOMA
     Dosage: 240MG  QDAY X 5 DAYS    QDAY X 5 DAYS   PO
     Route: 048
     Dates: start: 20050103, end: 20060303

REACTIONS (8)
  - ACUTE RESPIRATORY DISTRESS SYNDROME [None]
  - HAEMOLYTIC URAEMIC SYNDROME [None]
  - LEUKOCYTOCLASTIC VASCULITIS [None]
  - PULMONARY ALVEOLAR HAEMORRHAGE [None]
  - RASH GENERALISED [None]
  - RESPIRATORY FAILURE [None]
  - THROMBOCYTOPENIA [None]
  - THROMBOTIC THROMBOCYTOPENIC PURPURA [None]
